FAERS Safety Report 4968147-9 (Version None)
Quarter: 2006Q2

REPORT INFORMATION
  Report Type: 
  Country: None (occurrence: None)
  Receive Date: 20060410
  Receipt Date: 20060331
  Transmission Date: 20061013
  Serious: Yes (Hospitalization)
  Sender: FDA-Public Use
  Company Number: PHRM2006FR01236

PATIENT
  Age: 80 Year
  Sex: Female

DRUGS (1)
  1. TAREG [Suspect]
     Indication: HYPERTENSION
     Route: 048

REACTIONS (1)
  - COLITIS ULCERATIVE [None]
